FAERS Safety Report 6185372-2 (Version None)
Quarter: 2009Q2

REPORT INFORMATION
  Report Type: 
  Country: None (occurrence: None)
  Receive Date: 20090507
  Receipt Date: 20090422
  Transmission Date: 20091009
  Serious: Yes (Hospitalization)
  Sender: FDA-Public Use
  Company Number: DSM-2009-00531

PATIENT
  Age: 61 Year
  Sex: Male

DRUGS (7)
  1. OLMESARTAN MEDOXOMIL [Suspect]
     Indication: DRUG USE FOR UNKNOWN INDICATION
     Dosage: ORAL
     Route: 048
     Dates: end: 20090201
  2. ATORVASTATIN CALCIUM [Suspect]
     Indication: DRUG USE FOR UNKNOWN INDICATION
     Dosage: ORAL
     Route: 048
     Dates: end: 20090201
  3. ZANIDIP (LERCANIDIPINE HYDROCHLORIDE) (LERCANIDIPINE HYDROCHLORIDE) [Concomitant]
  4. CALCIDOSE (CALCIUM CARBONATE) (CALCIUM CARBONATE) [Concomitant]
  5. COVERSYL (PERINDOPRIL) (PERINDOPRIL) [Concomitant]
  6. SYMBICORT TURBUHALER (FORMOTEROL FUMARATE, BUDESONIDE) (FORMOTEROL FUM [Concomitant]
  7. INEXIUM (ESOMEPRAZOLE MAGNESIUM) (ESOMEPRAZOLE MAGNESIUM) [Concomitant]

REACTIONS (4)
  - AXONAL NEUROPATHY [None]
  - HYPOCALCAEMIA [None]
  - INFLAMMATION [None]
  - RHABDOMYOLYSIS [None]
